FAERS Safety Report 24704779 (Version 2)
Quarter: 2024Q4

REPORT INFORMATION
  Report Type: Report from Study
  Country: KR (occurrence: KR)
  Receive Date: 20241206
  Receipt Date: 20241211
  Transmission Date: 20250115
  Serious: Yes (Other)
  Sender: EMD SERONO INC
  Company Number: KR-Merck Healthcare KGaA-2024062517

PATIENT
  Sex: Male

DRUGS (1)
  1. SAIZEN [Suspect]
     Active Substance: SOMATROPIN
     Indication: Product used for unknown indication
     Dosage: ON (SINCE 25 NOVEMBER)
     Dates: start: 20230911

REACTIONS (2)
  - Exophthalmos [Not Recovered/Not Resolved]
  - Ocular hyperaemia [Not Recovered/Not Resolved]
